FAERS Safety Report 9189869 (Version 2)
Quarter: 2013Q2

REPORT INFORMATION
  Report Type: Spontaneous
  Country: RO (occurrence: RO)
  Receive Date: 20130326
  Receipt Date: 20130401
  Transmission Date: 20140414
  Serious: Yes (Death)
  Sender: FDA-Public Use
  Company Number: RO-AMGEN-ROUSP2013019595

PATIENT
  Age: 53 Year
  Sex: Female
  Weight: 45 kg

DRUGS (1)
  1. ARANESP [Suspect]
     Indication: ANAEMIA
     Dosage: 500 MUG, UNK
     Route: 058

REACTIONS (4)
  - Asphyxia [Fatal]
  - Pulmonary thrombosis [Fatal]
  - Cardiac arrest [Fatal]
  - Dyspnoea [Fatal]
